FAERS Safety Report 5838298-5 (Version None)
Quarter: 2008Q3

REPORT INFORMATION
  Report Type: 
  Country: None (occurrence: None)
  Receive Date: 20080808
  Receipt Date: 20080729
  Transmission Date: 20090109
  Serious: Yes (Congenital Anomaly)
  Sender: FDA-Public Use
  Company Number: US-AMGEN-US298076

PATIENT
  Weight: 3.717 kg

DRUGS (15)
  1. ENBREL [Suspect]
     Route: 064
     Dates: start: 20070831, end: 20080610
  2. INFLUENZA VACCINE [Concomitant]
     Route: 064
     Dates: start: 20071130, end: 20071130
  3. CALCIUM [Concomitant]
     Route: 064
     Dates: start: 20070831, end: 20080610
  4. ASCORBIC ACID [Concomitant]
     Route: 064
     Dates: start: 20070831, end: 20080610
  5. MULTI-VITAMINS [Concomitant]
     Route: 064
     Dates: start: 20070831, end: 20080610
  6. FOLIC ACID [Concomitant]
     Route: 064
     Dates: start: 20070831, end: 20080610
  7. PREDNISONE TAB [Concomitant]
     Route: 064
     Dates: start: 20071001, end: 20080610
  8. TYLENOL [Concomitant]
     Route: 064
     Dates: start: 20070831, end: 20080215
  9. MAALOX [Concomitant]
     Route: 064
     Dates: start: 20070831, end: 20080610
  10. TUMS [Concomitant]
     Route: 064
     Dates: start: 20070831, end: 20080610
  11. ALBUTEROL [Concomitant]
     Route: 064
     Dates: start: 20071215, end: 20080201
  12. PULMICORT-100 [Concomitant]
     Route: 064
     Dates: start: 20071215, end: 20080201
  13. CELEBREX [Concomitant]
     Route: 064
     Dates: start: 20070831, end: 20080315
  14. ATENOLOL [Concomitant]
     Route: 064
     Dates: start: 20080220, end: 20080610
  15. UNSPECIFIED MEDICATION [Concomitant]
     Route: 064
     Dates: start: 20080219

REACTIONS (1)
  - SEBACEOUS NAEVUS [None]
